FAERS Safety Report 12878333 (Version 3)
Quarter: 2016Q4

REPORT INFORMATION
  Report Type: Spontaneous
  Country: FR (occurrence: FR)
  Receive Date: 20161024
  Receipt Date: 20161212
  Transmission Date: 20170207
  Serious: Yes (Hospitalization, Other)
  Sender: FDA-Public Use
  Company Number: FR-SA-2016SA192370

PATIENT
  Age: 67 Year
  Sex: Male

DRUGS (28)
  1. PARACETAMOL [Suspect]
     Active Substance: ACETAMINOPHEN
     Route: 065
     Dates: start: 20160910, end: 20160927
  2. DIFFU K [Suspect]
     Active Substance: POTASSIUM CHLORIDE
     Route: 065
     Dates: start: 20160914, end: 20160923
  3. PHLOROGLUCINOL [Suspect]
     Active Substance: PHLOROGLUCINOL
     Route: 042
     Dates: start: 20160902, end: 20160927
  4. TAZOBACTAM/PIPERACILLIN [Suspect]
     Active Substance: PIPERACILLIN SODIUM\TAZOBACTAM SODIUM
     Indication: OSTEITIS
     Route: 042
     Dates: start: 20160910, end: 20161004
  5. PERINDOPRIL/INDAPAMIDE [Suspect]
     Active Substance: INDAPAMIDE\PERINDOPRIL
     Route: 048
     Dates: start: 20160803
  6. PROPOFOL. [Concomitant]
     Active Substance: PROPOFOL
     Dates: start: 20160726
  7. SOLUDACTONE [Suspect]
     Active Substance: CANRENOATE POTASSIUM\TROMETHAMINE
     Indication: HYPOKALAEMIA
     Route: 042
     Dates: start: 20160929, end: 20160929
  8. PERINDOPRIL [Suspect]
     Active Substance: PERINDOPRIL
     Route: 048
     Dates: start: 20160806
  9. LOVENOX [Suspect]
     Active Substance: ENOXAPARIN SODIUM
     Route: 058
     Dates: start: 20160720
  10. BISOCE [Suspect]
     Active Substance: BISOPROLOL
     Dosage: FORM -FILM COATED DIVISIBLE TABLET
     Route: 048
     Dates: start: 20160803
  11. XATRAL [Suspect]
     Active Substance: ALFUZOSIN
     Route: 048
     Dates: start: 20160727
  12. PARACETAMOL [Suspect]
     Active Substance: ACETAMINOPHEN
     Route: 065
     Dates: start: 20160804, end: 20160806
  13. TIORFAN [Suspect]
     Active Substance: RACECADOTRIL
     Indication: DIARRHOEA
     Route: 048
     Dates: start: 20160930, end: 20161004
  14. DIFFU K [Suspect]
     Active Substance: POTASSIUM CHLORIDE
     Route: 065
     Dates: start: 20160929
  15. AMLODIPINE [Suspect]
     Active Substance: AMLODIPINE BESYLATE
     Route: 048
     Dates: start: 20160802
  16. PARACETAMOL [Suspect]
     Active Substance: ACETAMINOPHEN
     Route: 065
     Dates: start: 20160902, end: 20160904
  17. TIORFAN [Suspect]
     Active Substance: RACECADOTRIL
     Indication: DIARRHOEA
     Route: 048
     Dates: start: 20160908, end: 20160908
  18. NICARDIPINE [Concomitant]
     Active Substance: NICARDIPINE
     Dates: start: 20160912, end: 20160915
  19. ZAMUDOL [Concomitant]
     Active Substance: TRAMADOL HYDROCHLORIDE
     Dates: start: 20160906
  20. POTASSIUM CHLORIDE. [Concomitant]
     Active Substance: POTASSIUM CHLORIDE
     Dosage: STRENGTH: 10%
     Dates: start: 20160913
  21. DIFFU K [Suspect]
     Active Substance: POTASSIUM CHLORIDE
     Route: 065
     Dates: start: 20160730, end: 20160814
  22. DIFFU K [Suspect]
     Active Substance: POTASSIUM CHLORIDE
     Route: 065
     Dates: start: 20160820, end: 20160826
  23. FLUOXETINE [Suspect]
     Active Substance: FLUOXETINE HYDROCHLORIDE
     Route: 048
     Dates: start: 20160804
  24. PARACETAMOL [Suspect]
     Active Substance: ACETAMINOPHEN
     Route: 065
     Dates: start: 20160820, end: 20160901
  25. ALPRAZOLAM. [Suspect]
     Active Substance: ALPRAZOLAM
     Route: 048
     Dates: start: 20160929, end: 20161005
  26. PRODILANTIN [Concomitant]
     Active Substance: FOSPHENYTOIN SODIUM
     Dates: start: 20160703
  27. AMIKACIN [Concomitant]
     Active Substance: AMIKACIN
     Dates: start: 20160714
  28. RANITIDINE. [Concomitant]
     Active Substance: RANITIDINE
     Dosage: STRENGTH: 300 MG
     Dates: start: 20160902

REACTIONS (5)
  - Drug reaction with eosinophilia and systemic symptoms [Unknown]
  - Rash papular [Recovering/Resolving]
  - Rash pruritic [Recovering/Resolving]
  - Eosinophilia [Recovering/Resolving]
  - Rash erythematous [Recovering/Resolving]

NARRATIVE: CASE EVENT DATE: 20160930
